FAERS Safety Report 7299398-9 (Version None)
Quarter: 2011Q1

REPORT INFORMATION
  Report Type: 
  Country: None (occurrence: None)
  Receive Date: 20110217
  Receipt Date: 20110211
  Transmission Date: 20110831
  Serious: Yes (Hospitalization)
  Sender: FDA-Public Use
  Company Number: B0699740A

PATIENT
  Age: 47 Year
  Sex: Male

DRUGS (2)
  1. AVANDIA [Suspect]
     Dosage: 4MG PER DAY
     Route: 048
     Dates: start: 20031104, end: 20041228
  2. AVANDAMET [Suspect]
     Route: 048
     Dates: start: 20041228, end: 20050505

REACTIONS (3)
  - MYOCARDIAL ISCHAEMIA [None]
  - PAIN [None]
  - CORONARY ARTERY DISEASE [None]
